FAERS Safety Report 7124818-X (Version None)
Quarter: 2010Q4

REPORT INFORMATION
  Report Type: 
  Country: None (occurrence: None)
  Receive Date: 20101123
  Receipt Date: 20101123
  Transmission Date: 20110411
  Serious: Yes (Life-Threatening, Hospitalization)
  Sender: FDA-Public Use
  Company Number: None

PATIENT
  Age: 42 Year
  Sex: Female
  Weight: 68.0396 kg

DRUGS (20)
  1. GLIMEPIRIDE [Suspect]
     Indication: DIABETES MELLITUS
     Dosage: 2 MG BID PO
     Route: 048
  2. ASPIRIN [Concomitant]
  3. AZITHROMYCIN [Concomitant]
  4. BRIMONIDINE/TIMOLOL [Concomitant]
  5. CALCIUM CARBONATE/VIT D [Concomitant]
  6. ENOXAPARIN SODIUM [Concomitant]
  7. ESOMEPRAZOLE [Concomitant]
  8. FERROUS SULFATE TAB [Concomitant]
  9. FUROSEMIDE [Concomitant]
  10. DUONEB [Concomitant]
  11. ISOSORBIDE MONONITRATE [Concomitant]
  12. MELOXICAM [Concomitant]
  13. METOCLOPRAMIDE [Concomitant]
  14. MIRTAZAPINE [Concomitant]
  15. MOMETASONE FUROATE [Concomitant]
  16. PHENYTOIN [Concomitant]
  17. RAMIPRIL [Concomitant]
  18. SOLU-MEDROL [Concomitant]
  19. VENLAFAXINE HCL EXTENDED-RELEASE [Concomitant]
  20. WELLBUTRIN XL [Concomitant]

REACTIONS (3)
  - CHRONIC OBSTRUCTIVE PULMONARY DISEASE [None]
  - GRAND MAL CONVULSION [None]
  - HYPOGLYCAEMIA [None]
